FAERS Safety Report 5423560-0 (Version None)
Quarter: 2007Q3

REPORT INFORMATION
  Report Type: 
  Country: None (occurrence: None)
  Receive Date: 20070821
  Receipt Date: 20070821
  Transmission Date: 20080115
  Serious: Yes (Other)
  Sender: FDA-Public Use
  Company Number: None

PATIENT
  Sex: Male
  Weight: 101.1521 kg

DRUGS (9)
  1. XYREM [Suspect]
     Indication: NARCOLEPSY
     Dosage: 9 ML OR 4.5 GM H.S AND 4 HRS AFTER H.S P.O
     Route: 048
     Dates: start: 20070118, end: 20070712
  2. VIVACTIL [Concomitant]
  3. FLOMAX [Concomitant]
  4. BENICAR [Concomitant]
  5. PROVIGIL [Concomitant]
  6. ASPIRIN [Concomitant]
  7. LEXAPRO [Concomitant]
  8. MELOXICAM [Concomitant]
  9. NEXIUM [Concomitant]

REACTIONS (2)
  - CONTUSION [None]
  - LOSS OF CONSCIOUSNESS [None]
